FAERS Safety Report 18433735 (Version 2)
Quarter: 2020Q4

REPORT INFORMATION
  Report Type: Other
  Country: PT (occurrence: PT)
  Receive Date: 20201028
  Receipt Date: 20201106
  Transmission Date: 20210114
  Serious: Yes (Death, Hospitalization, Other)
  Sender: FDA-Public Use
  Company Number: PT-ROCHE-2699852

PATIENT
  Sex: Male

DRUGS (1)
  1. METALYSE [Suspect]
     Active Substance: TENECTEPLASE
     Indication: ACUTE MYOCARDIAL INFARCTION
     Route: 065

REACTIONS (8)
  - Ventricular hypokinesia [Fatal]
  - Gaze palsy [Unknown]
  - Dysarthria [Unknown]
  - Haemodynamic instability [Unknown]
  - Hemiparesis [Unknown]
  - Cerebral artery occlusion [Unknown]
  - Nervous system disorder [Unknown]
  - Ischaemic stroke [Unknown]
